FAERS Safety Report 10099990 (Version 2)
Quarter: 2014Q2

REPORT INFORMATION
  Report Type: Report from Study
  Country: CA (occurrence: CA)
  Receive Date: 20140423
  Receipt Date: 20140520
  Transmission Date: 20141212
  Serious: Yes (Hospitalization)
  Sender: FDA-Public Use
  Company Number: CA-BRISTOL-MYERS SQUIBB COMPANY-20652475

PATIENT
  Age: 64 Year
  Sex: Female

DRUGS (7)
  1. ORENCIA [Suspect]
     Indication: RHEUMATOID ARTHRITIS
     Dosage: 1DF = 750 UNITS NOS
     Dates: start: 20130702
  2. IRBESARTAN [Concomitant]
  3. CIPRALEX [Concomitant]
  4. QUETIAPINE [Concomitant]
  5. DOCUSATE SODIUM [Concomitant]
  6. METHOTREXATE [Concomitant]
  7. FOLIC ACID [Concomitant]

REACTIONS (1)
  - Amyotrophic lateral sclerosis [Unknown]
